FAERS Safety Report 5266023-8 (Version None)
Quarter: 2007Q1

REPORT INFORMATION
  Report Type: 
  Country: None (occurrence: None)
  Receive Date: 20070315
  Receipt Date: 20070305
  Transmission Date: 20070707
  Serious: Yes (Other)
  Sender: FDA-Public Use
  Company Number: US-JNJFOC-20070301653

PATIENT
  Sex: Female

DRUGS (6)
  1. TOPAMAX [Suspect]
     Indication: HEADACHE
     Route: 048
  2. SCOPOLAMINE PATCH [Interacting]
     Indication: DRUG USE FOR UNKNOWN INDICATION
  3. LOESTRIN FE 24 [Concomitant]
     Route: 048
  4. WELLBUTRIN XL [Concomitant]
     Route: 048
  5. AMBIEN CR [Concomitant]
     Route: 048
  6. IMITREX [Concomitant]
     Route: 048

REACTIONS (2)
  - DECOMPRESSION SICKNESS [None]
  - DRUG INTERACTION [None]
